FAERS Safety Report 4347111-7 (Version None)
Quarter: 2004Q2

REPORT INFORMATION
  Report Type: 
  Country: None (occurrence: None)
  Receive Date: 20040422
  Receipt Date: 20040405
  Transmission Date: 20050107
  Serious: Yes (Other)
  Sender: FDA-Public Use
  Company Number: USA040464167

PATIENT
  Age: 64 Year
  Sex: Female

DRUGS (8)
  1. EVISTA [Suspect]
     Indication: OSTEOPOROSIS
     Dosage: 60 MG DAY
     Dates: start: 20030201
  2. XANAX [Concomitant]
  3. SELENIUM TRACE METAL ADDITIVE [Concomitant]
  4. VITAMIN C [Concomitant]
  5. VITAMIN E [Concomitant]
  6. MULTI-VITAMIN [Concomitant]
  7. GARLIC [Concomitant]
  8. SHARK-LIVER OIL [Concomitant]

REACTIONS (1)
  - ACOUSTIC NEUROMA [None]
